FAERS Safety Report 6050240-3 (Version None)
Quarter: 2009Q1

REPORT INFORMATION
  Report Type: 
  Country: None (occurrence: None)
  Receive Date: 20090116
  Receipt Date: 20090105
  Transmission Date: 20090719
  Serious: Yes (Hospitalization)
  Sender: FDA-Public Use
  Company Number: KV200900028

PATIENT
  Age: 78 Year
  Sex: Male

DRUGS (1)
  1. ISOSORBIDE MONONITRATE [Suspect]
     Indication: CARDIAC DISORDER
     Dosage: 60 MG, QD, ORAL
     Route: 048

REACTIONS (5)
  - CARDIAC FAILURE [None]
  - FACIAL PALSY [None]
  - FACIAL SPASM [None]
  - PRODUCT QUALITY ISSUE [None]
  - RENAL FAILURE [None]
